FAERS Safety Report 4371606-3 (Version None)
Quarter: 2004Q2

REPORT INFORMATION
  Report Type: 
  Country: None (occurrence: None)
  Receive Date: 20040601
  Receipt Date: 20040519
  Transmission Date: 20050107
  Serious: Yes (Hospitalization)
  Sender: FDA-Public Use
  Company Number: 237130

PATIENT
  Age: 3 Month
  Sex: Male

DRUGS (3)
  1. NOVOLIN R [Suspect]
     Indication: MEDICATION ERROR
     Dosage: INTRAVEONOUS
     Route: 042
     Dates: start: 20040515, end: 20040516
  2. VERSED [Concomitant]
  3. MORPHINE [Concomitant]

REACTIONS (4)
  - DEPRESSED LEVEL OF CONSCIOUSNESS [None]
  - ENCEPHALOPATHY [None]
  - HYPOGLYCAEMIA [None]
  - MEDICATION ERROR [None]
